FAERS Safety Report 6010234-0 (Version None)
Quarter: 2008Q4

REPORT INFORMATION
  Report Type: 
  Country: None (occurrence: None)
  Receive Date: 20081218
  Receipt Date: 20080131
  Transmission Date: 20090506
  Serious: No
  Sender: FDA-Public Use
  Company Number: A0706656A

PATIENT
  Age: 35 Year
  Sex: Female

DRUGS (4)
  1. FLONASE [Suspect]
     Dosage: 2SPR TWICE PER DAY
     Route: 045
     Dates: start: 19950101, end: 20000101
  2. VENTOLIN [Concomitant]
  3. PULMICORT-100 [Concomitant]
  4. PREDNISONE TAB [Concomitant]

REACTIONS (2)
  - MIDDLE EAR EFFUSION [None]
  - SINUSITIS FUNGAL [None]
